FAERS Safety Report 5869205-7 (Version None)
Quarter: 2008Q3

REPORT INFORMATION
  Report Type: 
  Country: None (occurrence: None)
  Receive Date: 20080827
  Receipt Date: 20080718
  Transmission Date: 20090109
  Serious: Yes (Other)
  Sender: FDA-Public Use
  Company Number: PHEH2008US06441

PATIENT
  Sex: Female

DRUGS (1)
  1. RECLAST [Suspect]
     Indication: OSTEOPOROSIS
     Dosage: INFUSION
     Dates: start: 20080530

REACTIONS (5)
  - ANGIOEDEMA [None]
  - HYPOAESTHESIA ORAL [None]
  - SWELLING [None]
  - SWOLLEN TONGUE [None]
  - URTICARIA [None]
